FAERS Safety Report 19512842 (Version 1)
Quarter: 2021Q3

REPORT INFORMATION
  Report Type: Other
  Country: US (occurrence: US)
  Receive Date: 20210709
  Receipt Date: 20210709
  Transmission Date: 20211014
  Serious: Yes (Other)
  Sender: FDA-Public Use
  Company Number: US-APOTEX-2021AP016337

PATIENT
  Age: 73 Year
  Sex: Female

DRUGS (2)
  1. RANITIDINE TABLETS [Suspect]
     Active Substance: RANITIDINE HYDROCHLORIDE
     Indication: GASTROOESOPHAGEAL REFLUX DISEASE
     Dosage: OTHER (4 PER WEEK)
     Route: 065
     Dates: start: 200709, end: 201909
  2. ZANTAC [Suspect]
     Active Substance: RANITIDINE HYDROCHLORIDE
     Indication: GASTROOESOPHAGEAL REFLUX DISEASE
     Dosage: OTHER (4 PER WEEK)
     Route: 065
     Dates: start: 200001, end: 201909

REACTIONS (2)
  - Hepatic cancer [Not Recovered/Not Resolved]
  - Renal cancer [Not Recovered/Not Resolved]

NARRATIVE: CASE EVENT DATE: 20191201
